FAERS Safety Report 9143556 (Version 1)
Quarter: 2013Q1

REPORT INFORMATION
  Report Type: Spontaneous
  Country: US (occurrence: US)
  Receive Date: 20130306
  Receipt Date: 20130306
  Transmission Date: 20140127
  Serious: Yes (Hospitalization)
  Sender: FDA-Public Use
  Company Number: US-CELGENEUS-163-POMAL-13024281

PATIENT
  Age: 56 Year
  Sex: 0

DRUGS (2)
  1. POMALYST [Suspect]
     Indication: PLASMA CELL MYELOMA
     Dosage: 4 MILLIGRAM
     Route: 048
     Dates: start: 20130220
  2. DEXAMETHASONE [Suspect]
     Indication: PLASMA CELL MYELOMA
     Route: 065
     Dates: start: 20130220

REACTIONS (1)
  - Gastrointestinal haemorrhage [Unknown]
